FAERS Safety Report 4613147-1 (Version None)
Quarter: 2005Q1

REPORT INFORMATION
  Report Type: 
  Country: None (occurrence: None)
  Receive Date: 20050316
  Receipt Date: 20050303
  Transmission Date: 20050727
  Serious: Yes (Hospitalization, Other)
  Sender: FDA-Public Use
  Company Number: USA050290475

PATIENT
  Age: 83 Year
  Sex: Male

DRUGS (11)
  1. CYMBALTA [Suspect]
     Dosage: 30 MG
     Dates: start: 20050114, end: 20050125
  2. ZOCOR (SIMVASTATIN RATIOPHARM) [Concomitant]
  3. ZESTRIL [Concomitant]
  4. AMIODARONE [Concomitant]
  5. LASIX [Concomitant]
  6. SYNTHROID [Concomitant]
  7. FOSAMAX [Concomitant]
  8. ASPIRIN [Concomitant]
  9. DARVOCET-N 100 [Concomitant]
  10. OSTEO BI-FLEX [Concomitant]
  11. TYLENOL (CAPLET) [Concomitant]

REACTIONS (29)
  - ANOREXIA [None]
  - AORTIC VALVE CALCIFICATION [None]
  - BACTERIURIA [None]
  - BLOOD CREATINE PHOSPHOKINASE INCREASED [None]
  - BLOOD CREATINE PHOSPHOKINASE MB INCREASED [None]
  - BLOOD CREATININE INCREASED [None]
  - BLOOD UREA INCREASED [None]
  - BRAIN NATRIURETIC PEPTIDE INCREASED [None]
  - CONFUSIONAL STATE [None]
  - DILATATION ATRIAL [None]
  - DILATATION VENTRICULAR [None]
  - DRY MOUTH [None]
  - DYSARTHRIA [None]
  - DYSPNOEA [None]
  - GAIT DISTURBANCE [None]
  - HAEMATURIA [None]
  - HEPATIC CONGESTION [None]
  - HEPATIC FAILURE [None]
  - INCOHERENT [None]
  - INSOMNIA [None]
  - LUNG INFILTRATION [None]
  - MITRAL VALVE CALCIFICATION [None]
  - PLEURAL EFFUSION [None]
  - PROTEINURIA [None]
  - PULMONARY VALVE INCOMPETENCE [None]
  - RESTLESS LEGS SYNDROME [None]
  - TRICUSPID VALVE INCOMPETENCE [None]
  - URINARY SEDIMENT PRESENT [None]
  - VENTRICULAR DYSFUNCTION [None]
